FAERS Safety Report 24187052 (Version 1)
Quarter: 2024Q3

REPORT INFORMATION
  Report Type: Spontaneous
  Country: PL (occurrence: PL)
  Receive Date: 20240808
  Receipt Date: 20240808
  Transmission Date: 20241017
  Serious: Yes (Hospitalization, Other)
  Sender: JOHNSON AND JOHNSON
  Company Number: PL-ORESUND-24OPAJY0428P

PATIENT
  Age: 61 Year
  Sex: Female

DRUGS (7)
  1. SIMPONI [Suspect]
     Active Substance: GOLIMUMAB
     Indication: Rheumatoid arthritis
     Route: 065
     Dates: start: 202306
  2. SIMPONI [Suspect]
     Active Substance: GOLIMUMAB
  3. SIMPONI [Suspect]
     Active Substance: GOLIMUMAB
  4. METHOTREXATE [Suspect]
     Active Substance: METHOTREXATE
     Indication: Rheumatoid arthritis
     Route: 065
     Dates: start: 202306
  5. METHYLPREDNISOLONE [Concomitant]
     Active Substance: METHYLPREDNISOLONE
     Route: 042
  6. PREDNISOLONE [Concomitant]
     Active Substance: PREDNISOLONE
  7. CYCLOPHOSPHAMIDE [Concomitant]
     Active Substance: CYCLOPHOSPHAMIDE
     Route: 042

REACTIONS (12)
  - Acute kidney injury [Unknown]
  - Nausea [Unknown]
  - Hypercreatinaemia [Recovered/Resolved]
  - Oedema peripheral [Recovered/Resolved]
  - Proteinuria [Recovering/Resolving]
  - Biopsy kidney [Unknown]
  - Glomerulonephritis rapidly progressive [Unknown]
  - Polyuria [Unknown]
  - Glomerulonephritis membranoproliferative [Unknown]
  - Asthenia [Unknown]
  - Hypervolaemia [Unknown]
  - Nephrotic syndrome [Unknown]
